FAERS Safety Report 6087327-5 (Version None)
Quarter: 2009Q1

REPORT INFORMATION
  Report Type: 
  Country: None (occurrence: None)
  Receive Date: 20090223
  Receipt Date: 20090216
  Transmission Date: 20090719
  Serious: Yes (Other)
  Sender: FDA-Public Use
  Company Number: B0530363A

PATIENT
  Age: 61 Year
  Sex: Female

DRUGS (7)
  1. SERETIDE [Suspect]
     Indication: ASTHMA
     Dosage: 2PUFF TWICE PER DAY
     Route: 055
  2. VENTOLIN [Suspect]
     Indication: ASTHMA
     Dosage: 100MCG AS REQUIRED
     Route: 055
  3. PIRITON [Suspect]
     Indication: DRUG USE FOR UNKNOWN INDICATION
     Route: 065
  4. ACETAMINOPHEN W/ CODEINE [Suspect]
     Indication: PAIN
     Route: 065
  5. DIAZEPAM [Suspect]
     Route: 065
  6. TEGRETOL [Suspect]
     Route: 065
  7. TRAMADOL HCL [Suspect]
     Indication: PAIN
     Route: 065

REACTIONS (6)
  - ASTHMA [None]
  - CHOKING SENSATION [None]
  - DRY EYE [None]
  - DYSPNOEA [None]
  - LACRIMATION INCREASED [None]
  - MIDDLE INSOMNIA [None]
